FAERS Safety Report 5843377-2 (Version None)
Quarter: 2008Q3

REPORT INFORMATION
  Report Type: 
  Country: None (occurrence: None)
  Receive Date: 20080812
  Receipt Date: 20080812
  Transmission Date: 20090109
  Serious: Yes (Death)
  Sender: FDA-Public Use
  Company Number: None

PATIENT
  Sex: Male

DRUGS (2)
  1. AMBIEN CR [Suspect]
  2. CITALOPRAM 40MG [Suspect]

REACTIONS (1)
  - COMPLETED SUICIDE [None]
